FAERS Safety Report 19799292 (Version 1)
Quarter: 2021Q3

REPORT INFORMATION
  Report Type: Spontaneous
  Country: US (occurrence: US)
  Receive Date: 20210907
  Receipt Date: 20210907
  Transmission Date: 20211014
  Serious: Yes (Other)
  Sender: FDA-Public Use
  Company Number: US-PFIZER INC-202101133672

PATIENT
  Age: 80 Year
  Sex: Male
  Weight: 80.74 kg

DRUGS (5)
  1. ZOLOFT [Concomitant]
     Active Substance: SERTRALINE HYDROCHLORIDE
     Indication: STRESS MANAGEMENT
     Dosage: 50 MG, 1X/DAY
  2. FLOMAX [MORNIFLUMATE] [Concomitant]
     Active Substance: MORNIFLUMATE
     Indication: PROSTATE EXAMINATION ABNORMAL
     Dosage: 0.4 MG, 2X/DAY
  3. ENTRESTO [Concomitant]
     Active Substance: SACUBITRIL\VALSARTAN
     Indication: BLOOD PRESSURE ABNORMAL
     Dosage: UNK, 2X/DAY [24?26 MG, 2X/DAY]
  4. CHANTIX [Suspect]
     Active Substance: VARENICLINE TARTRATE
     Indication: EX-TOBACCO USER
     Dosage: UNK
  5. TOPROL XL [Concomitant]
     Active Substance: METOPROLOL SUCCINATE
     Indication: STRESS
     Dosage: 50 MG, 1X/DAY

REACTIONS (5)
  - Nephrolithiasis [Unknown]
  - Inflammation [Unknown]
  - Nasal congestion [Unknown]
  - Therapeutic product effect incomplete [Unknown]
  - Weight increased [Unknown]
